FAERS Safety Report 9879533 (Version 1)
Quarter: 2014Q1

REPORT INFORMATION
  Report Type: Spontaneous
  Country: US (occurrence: US)
  Receive Date: 20140206
  Receipt Date: 20140206
  Transmission Date: 20141002
  Serious: Yes (Other)
  Sender: FDA-Public Use
  Company Number: US-ELI_LILLY_AND_COMPANY-US201401011340

PATIENT
  Age: 50 Year
  Sex: Male

DRUGS (1)
  1. AXIRON [Suspect]
     Indication: HYPOGONADISM
     Dosage: 60 MG, QD
     Route: 061

REACTIONS (2)
  - Weight increased [Unknown]
  - Inappropriate schedule of drug administration [Unknown]
